FAERS Safety Report 5950940-7 (Version None)
Quarter: 2008Q4

REPORT INFORMATION
  Report Type: 
  Country: None (occurrence: None)
  Receive Date: 20081112
  Receipt Date: 20081031
  Transmission Date: 20090506
  Serious: Yes (Hospitalization)
  Sender: FDA-Public Use
  Company Number: AU-PFIZER INC-2008092197

PATIENT
  Sex: Female

DRUGS (7)
  1. LYRICA [Suspect]
     Indication: NEURALGIA
     Route: 048
     Dates: start: 20081016, end: 20081027
  2. ACETAMINOPHEN [Concomitant]
  3. LEVOTHYROXINE SODIUM [Concomitant]
  4. FISH OIL [Concomitant]
  5. CALCIUM [Concomitant]
  6. IRON [Concomitant]
  7. ALL OTHER THERAPEUTIC PRODUCTS [Concomitant]

REACTIONS (9)
  - AGITATION [None]
  - ANOREXIA [None]
  - CONFUSIONAL STATE [None]
  - DISTURBANCE IN ATTENTION [None]
  - DIZZINESS [None]
  - DRY MOUTH [None]
  - FATIGUE [None]
  - MEMORY IMPAIRMENT [None]
  - WITHDRAWAL SYNDROME [None]
